FAERS Safety Report 19680842 (Version 1)
Quarter: 2021Q3

REPORT INFORMATION
  Report Type: Spontaneous
  Country: GB (occurrence: GB)
  Receive Date: 20210810
  Receipt Date: 20210810
  Transmission Date: 20211014
  Serious: Yes (Other)
  Sender: FDA-Public Use
  Company Number: GB-MYLANLABS-2021M1049839

PATIENT
  Age: 29 Year
  Sex: Female
  Weight: 75 kg

DRUGS (9)
  1. LANSOPRAZOLE. [Concomitant]
     Active Substance: LANSOPRAZOLE
     Dosage: 1 DOSAGE FORM, QD
     Dates: start: 20210730
  2. METFORMIN [Concomitant]
     Active Substance: METFORMIN HYDROCHLORIDE
     Dosage: TAKE TWO TWICE DAILY (DOSE TO BE TAKEN WITH BRE
     Dates: start: 20210222
  3. ONDANSETRON [Suspect]
     Active Substance: ONDANSETRON
     Indication: PRODUCT USED FOR UNKNOWN INDICATION
     Dosage: 8 MILLIGRAM
     Dates: start: 20210803, end: 202108
  4. NITROFURANTOIN. [Concomitant]
     Active Substance: NITROFURANTOIN
     Dosage: 1 DOSAGE FORM, BID
     Dates: start: 20210721, end: 20210721
  5. DIAZEPAM. [Concomitant]
     Active Substance: DIAZEPAM
     Dosage: TAKE UP TO 2 TABLETS THREE TIMES A DAY
     Dates: start: 20210803
  6. NAPROXEN. [Concomitant]
     Active Substance: NAPROXEN
     Dosage: INSTEAD OF IBUPROFEN
     Dates: start: 20210505, end: 20210602
  7. AMOXICILLIN. [Concomitant]
     Active Substance: AMOXICILLIN
     Dosage: 1 DOSAGE FORM, TID
     Dates: start: 20210721, end: 20210726
  8. MACROGOL [Concomitant]
     Active Substance: POLYETHYLENE GLYCOLS
     Dosage: INCREASE TO BOWELS
     Dates: start: 20210730
  9. MEFENAMIC ACID. [Concomitant]
     Active Substance: MEFENAMIC ACID
     Dosage: DURING PERIOD
     Dates: start: 20210324, end: 20210723

REACTIONS (3)
  - Tremor [Unknown]
  - Dysphemia [Unknown]
  - Serotonin syndrome [Recovering/Resolving]

NARRATIVE: CASE EVENT DATE: 202108
